FAERS Safety Report 21206946 (Version 1)
Quarter: 2022Q3

REPORT INFORMATION
  Report Type: Report from Study
  Country: SI (occurrence: SI)
  Receive Date: 20220812
  Receipt Date: 20220812
  Transmission Date: 20221026
  Serious: Yes (Hospitalization)
  Sender: FDA-Public Use
  Company Number: SI-TAKEDA-2022TUS053884

PATIENT
  Age: 80 Year
  Sex: Male
  Weight: 51 kg

DRUGS (6)
  1. VEDOLIZUMAB [Suspect]
     Active Substance: VEDOLIZUMAB
     Indication: Product used for unknown indication
     Dosage: 300 MILLIGRAM
     Route: 042
     Dates: start: 20211228
  2. BISOPROLOL FUMARATE [Concomitant]
     Active Substance: BISOPROLOL FUMARATE
     Indication: Myocardial injury
     Dosage: 5 MILLIGRAM
     Route: 048
     Dates: start: 20130327
  3. ROSUVASTATIN CALCIUM [Concomitant]
     Active Substance: ROSUVASTATIN CALCIUM
     Indication: Hyperlipidaemia
     Dosage: 5 MILLIGRAM
     Route: 048
     Dates: start: 20130327
  4. ASPIRIN [Concomitant]
     Active Substance: ASPIRIN
     Indication: Myocardial injury
     Dosage: 100 MILLIGRAM
     Route: 048
     Dates: start: 20130327
  5. HYDROCHLOROTHIAZIDE\LOSARTAN POTASSIUM [Concomitant]
     Active Substance: HYDROCHLOROTHIAZIDE\LOSARTAN POTASSIUM
     Indication: Hypertension
     Dosage: 100 MILLIGRAM
     Route: 048
     Dates: start: 20210119
  6. Salofalk [Concomitant]
     Indication: Colitis ulcerative
     Dosage: UNK
     Route: 048
     Dates: start: 20150209

REACTIONS (1)
  - Skin injury [Unknown]

NARRATIVE: CASE EVENT DATE: 20220703
